FAERS Safety Report 12194149 (Version 1)
Quarter: 2016Q1

REPORT INFORMATION
  Report Type: Spontaneous
  Country: US (occurrence: None)
  Receive Date: 20160318
  Receipt Date: 20160318
  Transmission Date: 20160526
  Serious: No
  Sender: FDA-Public Use
  Company Number: None

PATIENT
  Age: 64 Year
  Sex: Male
  Weight: 89.81 kg

DRUGS (1)
  1. FLUOCINONIDE 0.5% G+W LABORATORTIES [Suspect]
     Active Substance: FLUOCINONIDE
     Indication: DERMATITIS
     Dosage: 2/DAY, FINGERTIP AMOUNT, APPLIED TO A SURFACE, USUALLY THE SKIN
     Dates: start: 20160301, end: 20160304

REACTIONS (2)
  - Application site atrophy [None]
  - Application site reaction [None]

NARRATIVE: CASE EVENT DATE: 20160301
